FAERS Safety Report 8716205 (Version 2)
Quarter: 2013Q4

REPORT INFORMATION
  Report Type: Spontaneous
  Country: US (occurrence: US)
  Receive Date: 20120809
  Receipt Date: 20131106
  Transmission Date: 20140711
  Serious: Yes (Other)
  Sender: FDA-Public Use
  Company Number: US-009507513-1204USA02344

PATIENT
  Age: 74 Year
  Sex: Male

DRUGS (8)
  1. TIMOPTIC IN OCUDOSE [Suspect]
     Indication: ANGLE CLOSURE GLAUCOMA
     Dosage: 1 DF, BID
     Route: 047
     Dates: start: 201001
  2. TIMOPTIC IN OCUDOSE [Suspect]
     Dosage: 1 DF, BID
     Route: 047
     Dates: start: 20120201
  3. TIMOPTIC IN OCUDOSE [Suspect]
     Dosage: 1 DF, BID
     Route: 047
     Dates: start: 20120404
  4. TIMOPTIC [Suspect]
     Indication: ANGLE CLOSURE GLAUCOMA
     Route: 047
  5. AMLODIPINE [Concomitant]
  6. LOSARTAN POTASSIUM TABLETS [Concomitant]
  7. METOPROLOL [Concomitant]
  8. SIMVASTATIN [Concomitant]

REACTIONS (7)
  - Blindness [Unknown]
  - Hypersensitivity [Unknown]
  - Intraocular pressure increased [Unknown]
  - Ocular hyperaemia [Unknown]
  - Dry skin [Unknown]
  - Scab [Unknown]
  - Eye pruritus [Unknown]
